FAERS Safety Report 9787824 (Version 3)
Quarter: 2014Q2

REPORT INFORMATION
  Report Type: Spontaneous
  Country: US (occurrence: US)
  Receive Date: 20131230
  Receipt Date: 20140403
  Transmission Date: 20141212
  Serious: No
  Sender: FDA-Public Use
  Company Number: US-PFIZER INC-2013370430

PATIENT
  Age: 78 Year
  Sex: Female
  Weight: 64.4 kg

DRUGS (5)
  1. LIPITOR [Suspect]
     Indication: BLOOD CHOLESTEROL ABNORMAL
     Dosage: UNK
     Dates: start: 2002
  2. PLAVIX [Concomitant]
     Dosage: UNK
  3. SYNTHROID [Concomitant]
     Dosage: UNK
  4. CLONIDINE [Concomitant]
     Dosage: UNK
  5. ZOLPIDEM [Concomitant]
     Dosage: UNK

REACTIONS (3)
  - Muscle atrophy [Unknown]
  - Myalgia [Unknown]
  - Muscular weakness [Unknown]
